FAERS Safety Report 24584418 (Version 1)
Quarter: 2024Q4

REPORT INFORMATION
  Report Type: Spontaneous
  Country: US (occurrence: US)
  Receive Date: 20241106
  Receipt Date: 20241106
  Transmission Date: 20250115
  Serious: Yes (Death)
  Sender: PFIZER
  Company Number: US-PFIZER INC-202400294709

PATIENT
  Age: 66 Year
  Sex: Male

DRUGS (2)
  1. LORBRENA [Suspect]
     Active Substance: LORLATINIB
     Dosage: 100 MG
  2. XALKORI [Suspect]
     Active Substance: CRIZOTINIB
     Dosage: 250 MG

REACTIONS (1)
  - Death [Fatal]
